FAERS Safety Report 6243022-0 (Version None)
Quarter: 2009Q2

REPORT INFORMATION
  Report Type: 
  Country: None (occurrence: None)
  Receive Date: 20090624
  Receipt Date: 20090620
  Transmission Date: 20091009
  Serious: No
  Sender: FDA-Public Use
  Company Number: US-B.I. PHARMACEUTICALS,INC./RIDGEFIELD-2009-BP-07540BP

PATIENT
  Sex: Female

DRUGS (9)
  1. ZANTAC 75 [Suspect]
     Indication: GASTROOESOPHAGEAL REFLUX DISEASE
     Route: 048
     Dates: start: 20070101
  2. LIPITOR [Concomitant]
     Indication: BLOOD CHOLESTEROL INCREASED
  3. HYDROCHLOROTHIAZIDE [Concomitant]
     Indication: FLUID RETENTION
  4. LEVOXYL [Concomitant]
     Indication: HYPOTHYROIDISM
  5. VITAMIN [Concomitant]
     Indication: PROPHYLAXIS
  6. CALCIUM [Concomitant]
     Indication: PROPHYLAXIS
  7. FISH OIL [Concomitant]
  8. ALEVE [Concomitant]
     Indication: ARTHRITIS
  9. FLEX-A-MIN [Concomitant]
     Indication: ARTHRALGIA

REACTIONS (2)
  - MUSCULOSKELETAL CHEST PAIN [None]
  - ODYNOPHAGIA [None]
